FAERS Safety Report 15315813 (Version 1)
Quarter: 2018Q3

REPORT INFORMATION
  Report Type: Spontaneous
  Country: US (occurrence: US)
  Receive Date: 20180815
  Receipt Date: 20180815
  Transmission Date: 20181010
  Serious: Yes (Hospitalization)
  Sender: FDA-Public Use
  Company Number: None

PATIENT
  Age: 65 Year
  Sex: Male
  Weight: 118.03 kg

DRUGS (17)
  1. SPRYCEL [Suspect]
     Active Substance: DASATINIB
     Indication: ACUTE LEUKAEMIA
     Route: 048
     Dates: start: 20180731
  2. COZAAR [Concomitant]
     Active Substance: LOSARTAN POTASSIUM
  3. LANTUS SOLOSTAR [Concomitant]
     Active Substance: INSULIN GLARGINE
  4. KLOR?CON M10 [Concomitant]
     Active Substance: POTASSIUM CHLORIDE
  5. ACYCLOVIR. [Concomitant]
     Active Substance: ACYCLOVIR
  6. METOPROLOL TATRATE [Concomitant]
  7. ELIQUIS [Concomitant]
     Active Substance: APIXABAN
  8. HUMALOG [Concomitant]
     Active Substance: INSULIN LISPRO
  9. VITAMIN D3 [Concomitant]
     Active Substance: CHOLECALCIFEROL
  10. CIPROFLOXACIN. [Concomitant]
     Active Substance: CIPROFLOXACIN
  11. IMATINIB [Concomitant]
     Active Substance: IMATINIB
  12. FLUCONAZOLE. [Concomitant]
     Active Substance: FLUCONAZOLE
  13. FUROSEMIDE. [Concomitant]
     Active Substance: FUROSEMIDE
  14. ATORVASTATIN [Concomitant]
     Active Substance: ATORVASTATIN
  15. PREDNISONE. [Concomitant]
     Active Substance: PREDNISONE
  16. SENNOSIDES. [Concomitant]
     Active Substance: SENNOSIDES
  17. VITAMIN B12 [Concomitant]
     Active Substance: CYANOCOBALAMIN

REACTIONS (1)
  - Disease progression [None]

NARRATIVE: CASE EVENT DATE: 20180815
